FAERS Safety Report 7611745-4 (Version None)
Quarter: 2011Q3

REPORT INFORMATION
  Report Type: 
  Country: None (occurrence: None)
  Receive Date: 20110715
  Receipt Date: 20110706
  Transmission Date: 20111222
  Serious: Yes (Other)
  Sender: FDA-Public Use
  Company Number: JP-PFIZER INC-2011125216

PATIENT
  Age: 64 Year
  Sex: Female
  Weight: 51.5 kg

DRUGS (1)
  1. ATORVASTATIN CALCIUM [Suspect]
     Indication: HYPERCHOLESTEROLAEMIA
     Dosage: 10 MG, UID/QD
     Route: 048
     Dates: start: 20101008, end: 20101021

REACTIONS (3)
  - DRUG ERUPTION [None]
  - DERMATITIS CONTACT [None]
  - ARTHROPOD BITE [None]
